FAERS Safety Report 5458043-5 (Version None)
Quarter: 2007Q3

REPORT INFORMATION
  Report Type: 
  Country: None (occurrence: None)
  Receive Date: 20070919
  Receipt Date: 20070911
  Transmission Date: 20080115
  Serious: Yes (Hospitalization)
  Sender: FDA-Public Use
  Company Number: PHBS2007GB08666

PATIENT
  Age: 77 Year
  Sex: Male

DRUGS (11)
  1. STALEVO 100 [Suspect]
     Indication: PARKINSON'S DISEASE
     Dosage: 100 MG, QID
     Route: 048
     Dates: start: 20040101, end: 20060101
  2. ARICEPT [Concomitant]
     Indication: DEMENTIA
     Dosage: 5 MG/D
     Route: 048
     Dates: start: 20040101
  3. ASPIRIN [Concomitant]
     Indication: ANGIOPATHY
     Dosage: 75 MG/D
     Route: 048
  4. VENLAFAXINE HCL [Concomitant]
     Indication: DEPRESSION
     Dosage: 75 MG/D
     Route: 048
     Dates: start: 20050101
  5. PRAXILENE [Concomitant]
     Route: 065
  6. HYDROCORTISONE [Concomitant]
     Indication: ORTHOSTATIC HYPOTENSION
     Dosage: 5 MG/D
     Route: 048
     Dates: start: 20050101
  7. DOMPERIDONE [Concomitant]
     Indication: NAUSEA
     Dosage: 10 MG, TID
     Route: 065
     Dates: start: 20010101
  8. PROSCAR [Concomitant]
     Indication: BENIGN PROSTATIC HYPERPLASIA
     Dosage: 5 MG/D
     Route: 065
     Dates: start: 20040101
  9. PREDNISONE [Concomitant]
     Indication: POLYMYALGIA RHEUMATICA
     Dosage: 5 MG/D
     Route: 065
     Dates: start: 20010101
  10. CALCICHEW-D3 MITE [Concomitant]
     Indication: OSTEOPOROSIS PROPHYLAXIS
     Dosage: 2 TABLETS/D
     Route: 065
     Dates: start: 20040101
  11. ALENDRONATE SODIUM [Concomitant]
     Indication: OSTEOPOROSIS PROPHYLAXIS
     Dosage: 70 MG, PER WEEK
     Route: 065

REACTIONS (5)
  - GENERAL PHYSICAL HEALTH DETERIORATION [None]
  - HALLUCINATION, AUDITORY [None]
  - HALLUCINATION, VISUAL [None]
  - SHOCK [None]
  - TREMOR [None]
